FAERS Safety Report 9148252 (Version 1)
Quarter: 2013Q1

REPORT INFORMATION
  Report Type: Spontaneous
  Country: GB (occurrence: GB)
  Receive Date: 20130308
  Receipt Date: 20130308
  Transmission Date: 20140127
  Serious: Yes (Other)
  Sender: FDA-Public Use
  Company Number: GB-009507513-1302GBR000854

PATIENT
  Age: 30 Year
  Sex: Female

DRUGS (2)
  1. IMPLANON [Suspect]
     Dosage: 1 DF, UNK
     Route: 059
     Dates: start: 20100326, end: 20130130
  2. FOLIC ACID [Concomitant]

REACTIONS (3)
  - Abortion spontaneous complete [Unknown]
  - Unintended pregnancy [Recovered/Resolved]
  - Product quality issue [Unknown]
